FAERS Safety Report 14784758 (Version 1)
Quarter: 2018Q2

REPORT INFORMATION
  Report Type: Report from Study
  Country: US (occurrence: US)
  Receive Date: 20180420
  Receipt Date: 20180420
  Transmission Date: 20180711
  Serious: Yes (Other)
  Sender: FDA-Public Use
  Company Number: US-AMGEN-USASL2018051719

PATIENT
  Age: 62 Year
  Sex: Female

DRUGS (4)
  1. CRESTOR [Concomitant]
     Active Substance: ROSUVASTATIN CALCIUM
     Dosage: UNK
  2. LASIX [Concomitant]
     Active Substance: FUROSEMIDE
     Dosage: UNK
  3. DECADRON [Concomitant]
     Active Substance: DEXAMETHASONE
     Dosage: UNK
  4. REPATHA [Suspect]
     Active Substance: EVOLOCUMAB
     Indication: HYPERCHOLESTEROLAEMIA
     Dosage: 140 MG, Q2WK
     Route: 065

REACTIONS (15)
  - Lacrimation increased [Recovering/Resolving]
  - Myalgia [Recovering/Resolving]
  - Diarrhoea [Recovered/Resolved]
  - Injection site pain [Unknown]
  - Peripheral swelling [Recovering/Resolving]
  - Sinus disorder [Recovering/Resolving]
  - Pain [Recovering/Resolving]
  - Lymphadenopathy [Recovering/Resolving]
  - Lip swelling [Recovering/Resolving]
  - Fatigue [Recovering/Resolving]
  - Nausea [Recovering/Resolving]
  - Wheezing [Recovering/Resolving]
  - Muscle spasms [Recovering/Resolving]
  - Rhinorrhoea [Recovering/Resolving]
  - Pyrexia [Recovering/Resolving]
